FAERS Safety Report 8289889-6 (Version None)
Quarter: 2012Q2

REPORT INFORMATION
  Report Type: 
  Country: None (occurrence: None)
  Receive Date: 20120417
  Receipt Date: 20120411
  Transmission Date: 20120825
  Serious: No
  Sender: FDA-Public Use
  Company Number: US-B.I. PHARMACEUTICALS,INC./RIDGEFIELD-2012-BP-06851BP

PATIENT
  Age: 74 Year
  Sex: Male

DRUGS (8)
  1. METFORMIN HCL [Concomitant]
  2. METOCLOPRAMIDE [Concomitant]
  3. ACTOS [Concomitant]
  4. BENAZEPRIL HYDROCHLORIDE [Concomitant]
  5. SIMVASTATIN [Concomitant]
  6. HYDROCODONE [Concomitant]
     Indication: ARTHRITIS
  7. AGGRENOX [Suspect]
     Indication: TRANSIENT ISCHAEMIC ATTACK
     Route: 048
     Dates: start: 20110101, end: 20110101
  8. GLYPERIDE [Concomitant]

REACTIONS (3)
  - NAUSEA [None]
  - LOSS OF CONSCIOUSNESS [None]
  - HEADACHE [None]
